FAERS Safety Report 14076597 (Version 2)
Quarter: 2018Q1

REPORT INFORMATION
  Report Type: Spontaneous
  Country: BR (occurrence: BR)
  Receive Date: 20171011
  Receipt Date: 20180123
  Transmission Date: 20180508
  Serious: Yes (Other)
  Sender: FDA-Public Use
  Company Number: BR-PFIZER INC-2017394242

PATIENT
  Age: 73 Year
  Sex: Male

DRUGS (3)
  1. RIVOTRIL [Concomitant]
     Active Substance: CLONAZEPAM
     Indication: SLEEP DISORDER
     Dosage: UNK
  2. LYRICA [Suspect]
     Active Substance: PREGABALIN
     Indication: DEPRESSION
     Dosage: 375 MG, (1 TABLET 150 MG IN THE MORNING, 1 TABLET 75 MG AT MID-DAY, 1 TABLET 150 MG AT NIGHT)
     Dates: end: 2016
  3. VENLIFT [Concomitant]
     Active Substance: VENLAFAXINE HYDROCHLORIDE
     Indication: DEPRESSION
     Dosage: 1 TABLET 150 MG IN THE MORNING, 1 TABLET 75 MG AT MID-DAY AND 1 TABLET 150 MG IN THE NIGHT

REACTIONS (9)
  - Dyspepsia [Not Recovered/Not Resolved]
  - Sleep apnoea syndrome [Not Recovered/Not Resolved]
  - Blood uric acid abnormal [Not Recovered/Not Resolved]
  - Prostatomegaly [Not Recovered/Not Resolved]
  - Nervousness [Not Recovered/Not Resolved]
  - Diverticulitis [Not Recovered/Not Resolved]
  - Thyroid disorder [Not Recovered/Not Resolved]
  - Product use in unapproved indication [Unknown]
  - Diabetes mellitus [Not Recovered/Not Resolved]
